FAERS Safety Report 7331506-3 (Version None)
Quarter: 2011Q1

REPORT INFORMATION
  Report Type: 
  Country: None (occurrence: None)
  Receive Date: 20110304
  Receipt Date: 20110224
  Transmission Date: 20110831
  Serious: Yes (Death)
  Sender: FDA-Public Use
  Company Number: CH-PFIZER INC-CH-WYE-H12736209

PATIENT
  Age: 82 Year
  Sex: Female

DRUGS (14)
  1. MEMANTINE [Suspect]
     Indication: DEMENTIA ALZHEIMER'S TYPE
     Dosage: 10.0 MG, 1X/DAY
     Route: 048
     Dates: start: 20091125, end: 20091202
  2. AUGMENTIN '125' [Concomitant]
     Dosage: UNK
     Route: 042
     Dates: start: 20091201
  3. SEROQUEL [Suspect]
     Indication: RESTLESSNESS
  4. DAFALGAN [Suspect]
     Dosage: 500.0 MG, 3X/DAY
     Route: 048
     Dates: start: 20091127, end: 20091129
  5. ALDACTONE [Suspect]
     Dosage: 25.0 MG, 1X/DAY
     Route: 048
     Dates: end: 20091124
  6. BUDENOFALK [Concomitant]
     Route: 048
  7. SORTIS [Suspect]
     Dosage: 20.0 MG, 1X/DAY
     Route: 048
     Dates: end: 20091202
  8. PANTOZOL [Suspect]
     Dosage: 40.0 MG, 1X/DAY
     Route: 048
     Dates: end: 20091202
  9. FRAGMIN [Concomitant]
     Dosage: UNK
     Route: 058
     Dates: start: 20091123, end: 20091128
  10. SEROQUEL [Suspect]
     Indication: AGITATION
     Dosage: 5.0 MG, 1X/DAY
     Route: 048
     Dates: start: 20091123, end: 20091202
  11. BELOC [Suspect]
     Indication: ESSENTIAL HYPERTENSION
     Dosage: 25.0 MG, 2X/DAY
     Route: 048
     Dates: start: 20091128
  12. ACETYLSALICYLIC ACID [Concomitant]
     Route: 048
  13. VITARUBIN [Concomitant]
     Dosage: UNK
     Route: 048
     Dates: start: 20091123
  14. TOREM [Concomitant]
     Route: 048

REACTIONS (18)
  - DISEASE PROGRESSION [None]
  - C-REACTIVE PROTEIN INCREASED [None]
  - BLOOD CREATINE PHOSPHOKINASE INCREASED [None]
  - BLOOD ALKALINE PHOSPHATASE INCREASED [None]
  - TOXICITY TO VARIOUS AGENTS [None]
  - INTERNATIONAL NORMALISED RATIO INCREASED [None]
  - HEPATOCELLULAR INJURY [None]
  - RESPIRATORY DISORDER [None]
  - BLOOD LACTATE DEHYDROGENASE INCREASED [None]
  - MYOGLOBIN BLOOD INCREASED [None]
  - BLOOD CREATINE PHOSPHOKINASE MB INCREASED [None]
  - HEART RATE INCREASED [None]
  - BLOOD PRESSURE DECREASED [None]
  - BLOOD CREATININE INCREASED [None]
  - ALANINE AMINOTRANSFERASE INCREASED [None]
  - MUSCULAR WEAKNESS [None]
  - GAIT DISTURBANCE [None]
  - DEMENTIA ALZHEIMER'S TYPE [None]
